FAERS Safety Report 23238311 (Version 1)
Quarter: 2023Q4

REPORT INFORMATION
  Report Type: Spontaneous
  Country: US (occurrence: US)
  Receive Date: 20231129
  Receipt Date: 20231129
  Transmission Date: 20240110
  Serious: No
  Sender: FDA-Public Use
  Company Number: US-SA-SAC20231124001124

PATIENT
  Age: 75 Year
  Sex: Female

DRUGS (1)
  1. DUPIXENT [Suspect]
     Active Substance: DUPILUMAB
     Indication: Nasal polyps
     Dosage: 300 MG , EVERY 2 WEEKS
     Route: 058

REACTIONS (5)
  - Sciatica [Unknown]
  - Limb discomfort [Unknown]
  - Arthralgia [Unknown]
  - Nasal polyps [Unknown]
  - Condition aggravated [Unknown]
